FAERS Safety Report 6843454-3 (Version None)
Quarter: 2010Q3

REPORT INFORMATION
  Report Type: 
  Country: None (occurrence: None)
  Receive Date: 20100715
  Receipt Date: 20100707
  Transmission Date: 20110219
  Serious: Yes (Hospitalization, Other)
  Sender: FDA-Public Use
  Company Number: US-JNJFOC-20100605460

PATIENT
  Sex: Male
  Weight: 83.92 kg

DRUGS (18)
  1. SANDOZ FENTANYL TRANSDERMAL SYSTEM [Suspect]
     Indication: PAIN
     Route: 062
  2. SANDOZ FENTANYL TRANSDERMAL SYSTEM [Suspect]
     Route: 062
  3. ADVAIR DISKUS 100/50 [Concomitant]
     Indication: LUNG DISORDER
     Dosage: ONE PUFF EVERY DAY
     Route: 055
  4. SPIRIVA [Concomitant]
     Indication: LUNG DISORDER
     Dosage: ONE PUFF EVERY DAY
     Route: 055
  5. LOVASTATIN [Concomitant]
     Route: 048
  6. FRAGMIN [Concomitant]
     Indication: ANTICOAGULANT THERAPY
     Route: 058
  7. POTASSIUM CHLORIDE [Concomitant]
     Route: 048
  8. TAMSULOSIN HCL [Concomitant]
     Dosage: 0.4 MG, TWO EVERY DAY
     Route: 048
  9. METOPROLOL [Concomitant]
     Route: 048
  10. OMEPRAZOLE [Concomitant]
     Route: 048
  11. LORAZEPAM [Concomitant]
     Route: 048
  12. THEOPHYLLINE [Concomitant]
     Route: 048
  13. SERTRALINE HCL [Concomitant]
     Route: 048
  14. AVODART [Concomitant]
     Dosage: 0.5 MG, 2 EVERY DAY
     Route: 048
  15. PREDNISONE [Concomitant]
     Route: 048
  16. VALACYCLOVIR HYDROCHLORIDE [Concomitant]
     Route: 048
  17. FERROUS SULFATE [Concomitant]
     Route: 048
  18. VITAMIN C [Concomitant]
     Indication: VITAMIN SUPPLEMENTATION
     Route: 048

REACTIONS (6)
  - GASTROINTESTINAL DISORDER [None]
  - LUNG NEOPLASM MALIGNANT [None]
  - OEDEMA PERIPHERAL [None]
  - THROMBOSIS [None]
  - WEIGHT DECREASED [None]
  - WRONG TECHNIQUE IN DRUG USAGE PROCESS [None]
